FAERS Safety Report 19844512 (Version 1)
Quarter: 2021Q3

REPORT INFORMATION
  Report Type: Spontaneous
  Country: CN (occurrence: CN)
  Receive Date: 20210916
  Receipt Date: 20210916
  Transmission Date: 20211014
  Serious: Yes (Hospitalization, Other)
  Sender: FDA-Public Use
  Company Number: CN-BRACCO-2021CN03983

PATIENT
  Age: 48 Year
  Sex: Female

DRUGS (2)
  1. IOPAMIDOL [Suspect]
     Active Substance: IOPAMIDOL
     Indication: COMPUTERISED TOMOGRAM NECK
     Dosage: 37 G
     Route: 041
     Dates: start: 20210819, end: 20210819
  2. SODIUM CHLORIDE. [Concomitant]
     Active Substance: SODIUM CHLORIDE
     Indication: COMPUTERISED TOMOGRAM NECK
     Dosage: 250 ML
     Dates: start: 20210819, end: 20210819

REACTIONS (2)
  - Mallory-Weiss syndrome [Recovering/Resolving]
  - Anaphylactic shock [Recovering/Resolving]

NARRATIVE: CASE EVENT DATE: 20210819
